FAERS Safety Report 6442192-9 (Version None)
Quarter: 2009Q4

REPORT INFORMATION
  Report Type: 
  Country: None (occurrence: None)
  Receive Date: 20091116
  Receipt Date: 20091110
  Transmission Date: 20100525
  Serious: No
  Sender: FDA-Public Use
  Company Number: DE-ASTRAZENECA-2009SE26144

PATIENT
  Age: 43 Year
  Sex: Female

DRUGS (2)
  1. SEROQUEL XR [Suspect]
     Route: 048
     Dates: start: 20090901
  2. SEROQUEL XR [Suspect]
     Route: 048
     Dates: start: 20091101

REACTIONS (1)
  - LEUKOPENIA [None]
